FAERS Safety Report 18840420 (Version 1)
Quarter: 2021Q1

REPORT INFORMATION
  Report Type: Spontaneous
  Country: FI (occurrence: FI)
  Receive Date: 20210204
  Receipt Date: 20210204
  Transmission Date: 20210419
  Serious: Yes (Other)
  Sender: FDA-Public Use
  Company Number: FI-TEVA-2021-FI-1875215

PATIENT
  Age: 34 Year
  Sex: Male

DRUGS (3)
  1. QUETIAPINE. [Suspect]
     Active Substance: QUETIAPINE
     Route: 065
  2. OPAMOX [Suspect]
     Active Substance: OXAZEPAM
     Route: 065
  3. DIAPAM (DIAZEPAM) [Suspect]
     Active Substance: DIAZEPAM
     Route: 065

REACTIONS (4)
  - Weight increased [Unknown]
  - Withdrawal syndrome [Unknown]
  - Anxiety [Unknown]
  - Drug dependence [Unknown]
